FAERS Safety Report 5102130-8 (Version None)
Quarter: 2006Q3

REPORT INFORMATION
  Report Type: 
  Country: None (occurrence: None)
  Receive Date: 20060912
  Receipt Date: 20050630
  Transmission Date: 20061208
  Serious: Yes (Hospitalization)
  Sender: FDA-Public Use
  Company Number: JP-BAYER-200510310BYL

PATIENT
  Age: 31 Year
  Sex: Female
  Weight: 60 kg

DRUGS (3)
  1. ASPIRIN [Suspect]
     Indication: PYREXIA
     Dosage: TOTAL DAILY DOSE: 500 MG  UNIT DOSE: 500 MG
     Route: 048
     Dates: start: 20050612, end: 20050612
  2. CALONAL [Suspect]
     Indication: PYREXIA
     Route: 048
     Dates: start: 20050612, end: 20050612
  3. UNKNOWN [Concomitant]

REACTIONS (1)
  - STEVENS-JOHNSON SYNDROME [None]
